FAERS Safety Report 15556968 (Version 1)
Quarter: 2018Q4

REPORT INFORMATION
  Report Type: Spontaneous
  Country: BR (occurrence: BR)
  Receive Date: 20181026
  Receipt Date: 20181026
  Transmission Date: 20190205
  Serious: Yes (Hospitalization, Other)
  Sender: FDA-Public Use
  Company Number: BR-PFIZER INC-2018434921

PATIENT
  Age: 84 Year
  Sex: Male

DRUGS (1)
  1. LORAX [Suspect]
     Active Substance: LORAZEPAM
     Indication: SLEEP DISORDER
     Dosage: 2 MG, UNK
     Dates: start: 1978

REACTIONS (3)
  - Drug effect decreased [Unknown]
  - Arthropod bite [Unknown]
  - Guillain-Barre syndrome [Unknown]
